FAERS Safety Report 24281610 (Version 1)
Quarter: 2024Q3

REPORT INFORMATION
  Report Type: Spontaneous
  Country: US (occurrence: US)
  Receive Date: 20240904
  Receipt Date: 20240904
  Transmission Date: 20241017
  Serious: No
  Sender: INCYTE
  Company Number: US-INCYTE CORPORATION-2024IN008930

PATIENT

DRUGS (1)
  1. JAKAFI [Suspect]
     Active Substance: RUXOLITINIB
     Dosage: 15 MILLIGRAM,  CUTTING THE 10MG TABLETS IN HALF AND TAKING ONE AND HALF TABLETS TO GET HIS NEW DOSE
     Route: 048

REACTIONS (1)
  - Wrong technique in product usage process [Unknown]
